FAERS Safety Report 19944406 (Version 1)
Quarter: 2021Q4

REPORT INFORMATION
  Report Type: Spontaneous
  Country: US (occurrence: US)
  Receive Date: 20211011
  Receipt Date: 20211011
  Transmission Date: 20220303
  Serious: No
  Sender: FDA-Public Use
  Company Number: US-JACOBUS PHARMACEUTICAL COMPANY, INC.-2120417

PATIENT
  Age: 19 Year
  Sex: Female

DRUGS (9)
  1. RUZURGI [Suspect]
     Active Substance: AMIFAMPRIDINE
     Indication: Congenital myasthenic syndrome
     Route: 048
     Dates: start: 20200420
  2. DRONABINOL [Concomitant]
     Active Substance: DRONABINOL
  3. FERROUS SULFATE [Concomitant]
     Active Substance: FERROUS SULFATE
  4. IBUPROFEN [Concomitant]
     Active Substance: IBUPROFEN
  5. LO LOESTRIN FE [Concomitant]
     Active Substance: ETHINYL ESTRADIOL\NORETHINDRONE ACETATE
  6. PSEUDOEPHEDRINE HYDROCHLORIDE [Concomitant]
     Active Substance: PSEUDOEPHEDRINE HYDROCHLORIDE
  7. MESTINON [Concomitant]
     Active Substance: PYRIDOSTIGMINE BROMIDE
  8. LEXAPRO [Concomitant]
     Active Substance: ESCITALOPRAM OXALATE
  9. CONCERTA [Concomitant]
     Active Substance: METHYLPHENIDATE HYDROCHLORIDE

REACTIONS (3)
  - Fungal infection [Unknown]
  - Skin infection [Unknown]
  - Bacterial infection [Unknown]
